FAERS Safety Report 6160707-5 (Version None)
Quarter: 2009Q2

REPORT INFORMATION
  Report Type: 
  Country: None (occurrence: None)
  Receive Date: 20090420
  Receipt Date: 20090406
  Transmission Date: 20091009
  Serious: Yes (Other)
  Sender: FDA-Public Use
  Company Number: MA-TYCO HEALTHCARE/MALLINCKRODT-T200900762

PATIENT

DRUGS (4)
  1. MORPHINE [Suspect]
     Indication: LOCAL ANAESTHESIA
     Dosage: 100 UG, SINGLE
  2. BOTOX [Suspect]
     Indication: LOCAL ANAESTHESIA
  3. BUPIVACAINE [Suspect]
     Indication: LOCAL ANAESTHESIA
     Dosage: 10 MG, SINGLE
  4. LEVOTHYROXINE SODIUM [Concomitant]

REACTIONS (3)
  - HYPERSENSITIVITY [None]
  - PARAESTHESIA [None]
  - PARAPLEGIA [None]
